FAERS Safety Report 13259272 (Version 6)
Quarter: 2017Q4

REPORT INFORMATION
  Report Type: Spontaneous
  Country: US (occurrence: US)
  Receive Date: 20170222
  Receipt Date: 20171120
  Transmission Date: 20180320
  Serious: No
  Sender: FDA-Public Use
  Company Number: US-PFIZER INC-2017068732

PATIENT
  Age: 60 Year
  Sex: Female

DRUGS (1)
  1. IBRANCE [Suspect]
     Active Substance: PALBOCICLIB
     Indication: BREAST CANCER
     Dosage: 125 MG, DAILY X 21 (1 CAP DAILY FOR 21 DAYS)
     Route: 048
     Dates: start: 20170123

REACTIONS (6)
  - White blood cell count decreased [Unknown]
  - Limb discomfort [Unknown]
  - Myalgia [Unknown]
  - Fatigue [Not Recovered/Not Resolved]
  - Visual impairment [Unknown]
  - Anxiety [Unknown]

NARRATIVE: CASE EVENT DATE: 20170124
